FAERS Safety Report 17589200 (Version 1)
Quarter: 2020Q1

REPORT INFORMATION
  Report Type: Spontaneous
  Country: US (occurrence: US)
  Receive Date: 20200323
  Receipt Date: 20200323
  Transmission Date: 20200409
  Serious: Yes (Other)
  Sender: FDA-Public Use
  Company Number: None

PATIENT
  Age: 79 Year
  Sex: Female
  Weight: 72.57 kg

DRUGS (1)
  1. VANIQA [Suspect]
     Active Substance: EFLORNITHINE HYDROCHLORIDE
     Indication: HAIR GROWTH RATE ABNORMAL
     Dosage: ?          QUANTITY:APPLIED TO AREA UP;OTHER FREQUENCY:2X;?
     Route: 061
     Dates: start: 20200227, end: 20200304

REACTIONS (3)
  - Product label confusion [None]
  - Dermal absorption impaired [None]
  - Drug ineffective [None]

NARRATIVE: CASE EVENT DATE: 20200227
